FAERS Safety Report 7399041-4 (Version None)
Quarter: 2011Q2

REPORT INFORMATION
  Report Type: 
  Country: None (occurrence: None)
  Receive Date: 20110407
  Receipt Date: 20110330
  Transmission Date: 20111010
  Serious: Yes (Hospitalization)
  Sender: FDA-Public Use
  Company Number: US-ABBOTT-11P-163-0715797-00

PATIENT
  Sex: Female
  Weight: 63.56 kg

DRUGS (3)
  1. UNKNOWN BIRTH CONTROL PILLS [Concomitant]
     Indication: CONTRACEPTION
  2. HUMIRA [Suspect]
     Route: 058
     Dates: start: 20101001
  3. HUMIRA [Suspect]
     Indication: CROHN'S DISEASE
     Route: 058
     Dates: start: 20091101, end: 20100601

REACTIONS (5)
  - HERPES ZOSTER [None]
  - MENINGITIS [None]
  - HEADACHE [None]
  - WHITE BLOOD CELL COUNT INCREASED [None]
  - CROHN'S DISEASE [None]
